FAERS Safety Report 5542320-3 (Version None)
Quarter: 2007Q4

REPORT INFORMATION
  Report Type: 
  Country: None (occurrence: None)
  Receive Date: 20071210
  Receipt Date: 20071205
  Transmission Date: 20080405
  Serious: Yes (Other)
  Sender: FDA-Public Use
  Company Number: US-ASTRAZENECA-2007UW27758

PATIENT
  Age: 72 Year
  Sex: Female
  Weight: 88.5 kg

DRUGS (1)
  1. CRESTOR [Suspect]
     Indication: HYPERCHOLESTEROLAEMIA
     Route: 048
     Dates: start: 20060901, end: 20060101

REACTIONS (2)
  - PAIN [None]
  - SENSATION OF HEAVINESS [None]
